FAERS Safety Report 4989420-4 (Version None)
Quarter: 2006Q2

REPORT INFORMATION
  Report Type: 
  Country: None (occurrence: None)
  Receive Date: 20060426
  Receipt Date: 20060410
  Transmission Date: 20061013
  Serious: Yes (Hospitalization)
  Sender: FDA-Public Use
  Company Number: USA0511112595

PATIENT
  Sex: Female

DRUGS (7)
  1. CYMBALTA [Suspect]
     Indication: DEPRESSION
     Dosage: 30 MG; 60 MG
     Dates: start: 20051025, end: 20051026
  2. CYMBALTA [Suspect]
     Indication: DEPRESSION
     Dosage: 30 MG; 60 MG
     Dates: start: 20051027, end: 20051031
  3. REMERON [Concomitant]
  4. RISPERDAL [Concomitant]
  5. DIGOXIN [Concomitant]
  6. THYROID HORMONES [Concomitant]
  7. LOVENOX [Concomitant]

REACTIONS (3)
  - BLOOD SODIUM DECREASED [None]
  - FALL [None]
  - HIP FRACTURE [None]
